FAERS Safety Report 24114830 (Version 1)
Quarter: 2024Q3

REPORT INFORMATION
  Report Type: Spontaneous
  Country: US (occurrence: US)
  Receive Date: 20240721
  Receipt Date: 20240721
  Transmission Date: 20241017
  Serious: No
  Sender: DR REDDYS
  Company Number: None

PATIENT
  Age: 18 Year
  Sex: Male

DRUGS (4)
  1. CARVEDILOL [Suspect]
     Active Substance: CARVEDILOL
     Indication: Product used for unknown indication
     Dosage: HE HAD PREVIOUSLY TOLERATED DOSES AS HIGH AS CARVEDILOL 12.5 MG TWICE DAILY AND LISINOPRIL 10 MG DAI
  2. CARVEDILOL [Suspect]
     Active Substance: CARVEDILOL
     Dosage: AT PRESENTATION, HE WAS ON CARVEDILOL 9.375 MG TWICE DAILY,
  3. LISINOPRIL [Suspect]
     Active Substance: LISINOPRIL
     Indication: Product used for unknown indication
  4. LISINOPRIL [Suspect]
     Active Substance: LISINOPRIL
     Dosage: AT PRESENTATION, HE WAS ON LISINOPRIL 2.5 MG DAILY.

REACTIONS (1)
  - Hypotension [Unknown]
